FAERS Safety Report 23135328 (Version 2)
Quarter: 2023Q4

REPORT INFORMATION
  Report Type: Report from Study
  Country: CA (occurrence: CA)
  Receive Date: 20231101
  Receipt Date: 20231205
  Transmission Date: 20240109
  Serious: Yes (Hospitalization)
  Sender: FDA-Public Use
  Company Number: CA-KOREA IPSEN Pharma-2023-24873

PATIENT
  Sex: Male

DRUGS (8)
  1. LANREOTIDE ACETATE [Suspect]
     Active Substance: LANREOTIDE ACETATE
     Indication: Gastroenteropancreatic neuroendocrine tumour disease
     Route: 058
     Dates: start: 20220907
  2. PERINDOPRIL [Concomitant]
     Active Substance: PERINDOPRIL
  3. DUTASTERIDE [Concomitant]
     Active Substance: DUTASTERIDE
  4. MIRABEGRON [Concomitant]
     Active Substance: MIRABEGRON
  5. PREDNISONE [Concomitant]
     Active Substance: PREDNISONE
  6. CLOPIDOGREL [Concomitant]
     Active Substance: CLOPIDOGREL BISULFATE
  7. FESOTERODINE [Concomitant]
     Active Substance: FESOTERODINE
  8. FERROUS FUMARATE [Concomitant]
     Active Substance: FERROUS FUMARATE

REACTIONS (1)
  - Urinary tract infection [Unknown]
